FAERS Safety Report 4269245-8 (Version None)
Quarter: 2004Q1

REPORT INFORMATION
  Report Type: 
  Country: None (occurrence: None)
  Receive Date: 20040113
  Receipt Date: 20031230
  Transmission Date: 20041129
  Serious: Yes (Hospitalization)
  Sender: FDA-Public Use
  Company Number: FR-BRISTOL-MYERS SQUIBB COMPANY-12469581

PATIENT
  Age: 52 Year
  Sex: Female

DRUGS (4)
  1. HOLOXAN [Suspect]
     Indication: UTERINE LEIOMYOSARCOMA
     Dosage: 1000 MG
     Route: 042
     Dates: start: 20030602, end: 20031021
  2. UROMITEXAN [Suspect]
     Route: 042
     Dates: start: 20030102, end: 20031021
  3. ELDISINE [Suspect]
     Indication: UTERINE LEIOMYOSARCOMA
     Route: 042
     Dates: start: 20030102, end: 20031021
  4. CISPLATYL [Suspect]
     Indication: UTERINE LEIOMYOSARCOMA
     Route: 042
     Dates: start: 20030602, end: 20031021

REACTIONS (2)
  - BONE MARROW DEPRESSION [None]
  - DRUG EFFECT DECREASED [None]
